FAERS Safety Report 4970439-4 (Version None)
Quarter: 2006Q2

REPORT INFORMATION
  Report Type: 
  Country: None (occurrence: None)
  Receive Date: 20060406
  Receipt Date: 20060321
  Transmission Date: 20061013
  Serious: Yes (Death)
  Sender: FDA-Public Use
  Company Number: 221435

PATIENT
  Age: 25 Year
  Sex: Male

DRUGS (3)
  1. AVASTIN [Suspect]
     Indication: COLON CANCER
     Dosage: 780 MG, Q3W, INTRAVENOUS
     Route: 042
     Dates: start: 20060111
  2. CAPECITABINE (CAPECITABINE) [Suspect]
     Indication: COLON CANCER
     Dosage: 2300 MG, BID, ORAL
     Route: 048
     Dates: start: 20060111
  3. OXALIPLATIN (OXALIPLATIN) [Suspect]
     Indication: COLON CANCER
     Dosage: 280 MG, Q3W, INTRAVENOUS
     Route: 042
     Dates: start: 20060111

REACTIONS (1)
  - RESPIRATORY ARREST [None]
